FAERS Safety Report 20529031 (Version 4)
Quarter: 2023Q2

REPORT INFORMATION
  Report Type: Spontaneous
  Country: US (occurrence: US)
  Receive Date: 20220228
  Receipt Date: 20230512
  Transmission Date: 20230722
  Serious: Yes (Hospitalization, Other)
  Sender: FDA-Public Use
  Company Number: US-PFIZER INC-202101689511

PATIENT
  Age: 52 Year
  Sex: Female

DRUGS (3)
  1. IBRANCE [Suspect]
     Active Substance: PALBOCICLIB
     Dosage: AT DINNER TIME
     Dates: start: 20211021
  2. IBRANCE [Suspect]
     Active Substance: PALBOCICLIB
     Dosage: 125 MG, CYCLIC
     Dates: start: 20230427
  3. ENOXAPARIN [Concomitant]
     Active Substance: ENOXAPARIN
     Indication: Prophylaxis
     Dosage: UNK

REACTIONS (7)
  - Mastectomy [Unknown]
  - Pyrexia [Recovered/Resolved]
  - Headache [Recovering/Resolving]
  - Tooth disorder [Unknown]
  - Red blood cell count decreased [Unknown]
  - Anaemia [Unknown]
  - Platelet count decreased [Unknown]

NARRATIVE: CASE EVENT DATE: 20210101
